FAERS Safety Report 8879295 (Version 1)
Quarter: 2012Q4

REPORT INFORMATION
  Report Type: 
  Country: US (occurrence: US)
  Receive Date: 20121031
  Receipt Date: 20121031
  Transmission Date: 20130627
  Serious: Yes (Hospitalization, Other)
  Sender: FDA-Public Use
  Company Number: US-TARO-2012P1061246

PATIENT
  Age: 23 Year
  Sex: Female
  Weight: 64 kg

DRUGS (2)
  1. PHENYTOIN [Suspect]
  2. PHENOBARBITAL [Suspect]

REACTIONS (6)
  - Grand mal convulsion [Recovered/Resolved]
  - Pseudohypoparathyroidism [Unknown]
  - Condition aggravated [Recovered/Resolved]
  - Primary hypothyroidism [Recovered/Resolved]
  - Vitamin D deficiency [Recovered/Resolved]
  - Electrocardiogram QT prolonged [Recovered/Resolved]
